FAERS Safety Report 16476397 (Version 8)
Quarter: 2020Q1

REPORT INFORMATION
  Report Type: Spontaneous
  Country: CA (occurrence: CA)
  Receive Date: 20190626
  Receipt Date: 20200115
  Transmission Date: 20200409
  Serious: Yes (Hospitalization, Other)
  Sender: FDA-Public Use
  Company Number: CA-CELLTRION INC.-2019CA019909

PATIENT

DRUGS (12)
  1. MIRTAZAPINE. [Concomitant]
     Active Substance: MIRTAZAPINE
     Dosage: UNK AT BEDTIME (HS)
     Route: 065
  2. INFLECTRA [Suspect]
     Active Substance: INFLIXIMAB-DYYB
     Dosage: 300 MG EVERY 0, 2, 6 WEEKS, THEN EVERY 8 WEEKS
     Route: 042
     Dates: start: 20190410, end: 20190410
  3. INFLECTRA [Suspect]
     Active Substance: INFLIXIMAB-DYYB
     Dosage: 550 MG (10MG/KG)  EVERY 8 WEEKS
     Route: 042
     Dates: start: 20190910
  4. INFLECTRA [Suspect]
     Active Substance: INFLIXIMAB-DYYB
     Dosage: 550 MG (10MG/KG) EVERY 8 WEEKS
     Route: 042
     Dates: start: 20191023, end: 20191023
  5. XARELTO [Concomitant]
     Active Substance: RIVAROXABAN
     Dosage: UNK
     Route: 065
     Dates: start: 2007
  6. INFLECTRA [Suspect]
     Active Substance: INFLIXIMAB-DYYB
     Dosage: 300 MG EVERY 0, 2, 6 WEEKS, THEN EVERY 8 WEEKS
     Route: 042
     Dates: start: 20190312
  7. PREDNISONE. [Concomitant]
     Active Substance: PREDNISONE
     Dosage: UNK
     Dates: start: 2019
  8. INFLECTRA [Suspect]
     Active Substance: INFLIXIMAB-DYYB
     Indication: COLITIS ULCERATIVE
     Dosage: 300 MG EVERY 0, 2, 6 WEEKS, THEN EVERY 8 WEEKS
     Route: 042
     Dates: start: 20190225, end: 20190410
  9. INFLECTRA [Suspect]
     Active Substance: INFLIXIMAB-DYYB
     Dosage: 550 MG (10MG/KG)  EVERY 8 WEEKS
     Route: 042
     Dates: start: 20190510, end: 20190510
  10. INFLECTRA [Suspect]
     Active Substance: INFLIXIMAB-DYYB
     Dosage: 550 MG (10MG/KG)  EVERY 8 WEEKS
     Route: 042
     Dates: start: 20190617
  11. INFLECTRA [Suspect]
     Active Substance: INFLIXIMAB-DYYB
     Dosage: 550 MG (10MG/KG)  EVERY 8 WEEKS
     Route: 042
     Dates: start: 20190716
  12. VENOFER [Concomitant]
     Active Substance: IRON SUCROSE
     Dosage: UNK (X 3 DOSES)
     Dates: start: 201902

REACTIONS (18)
  - Drug ineffective [Unknown]
  - Decreased appetite [Unknown]
  - Nausea [Unknown]
  - Paraesthesia [Unknown]
  - Lymphocytosis [Unknown]
  - Malaise [Unknown]
  - Incontinence [Unknown]
  - Inappropriate schedule of product administration [Unknown]
  - Condition aggravated [Unknown]
  - Pyrexia [Unknown]
  - Dyspnoea [Unknown]
  - Heart rate irregular [Unknown]
  - Body temperature increased [Unknown]
  - Headache [Unknown]
  - Off label use [Unknown]
  - Lymph node palpable [Unknown]
  - Splenomegaly [Unknown]
  - Therapeutic product effect incomplete [Unknown]

NARRATIVE: CASE EVENT DATE: 2019
